FAERS Safety Report 11242887 (Version 2)
Quarter: 2015Q3

REPORT INFORMATION
  Report Type: Spontaneous
  Country: JP (occurrence: JP)
  Receive Date: 20150707
  Receipt Date: 20150918
  Transmission Date: 20151125
  Serious: Yes (Life-Threatening)
  Sender: FDA-Public Use
  Company Number: JP-009507513-1507JPN002651

PATIENT
  Age: 78 Year
  Sex: Male
  Weight: 56 kg

DRUGS (10)
  1. ESLAX [Suspect]
     Active Substance: ROCURONIUM BROMIDE
     Indication: NEUROMUSCULAR BLOCKING THERAPY
     Dosage: 50 MG, QD
     Route: 042
     Dates: start: 20150619, end: 20150619
  2. PROPOFOL. [Concomitant]
     Active Substance: PROPOFOL
     Dosage: 50 MG, QD
     Route: 042
     Dates: start: 20150619, end: 20150619
  3. SEVOFLURANE. [Concomitant]
     Active Substance: SEVOFLURANE
     Dosage: DOSAGE: 1%
     Route: 055
     Dates: start: 20150619
  4. BRIDION INTRAVENOUS 200MG [Suspect]
     Active Substance: SUGAMMADEX
     Dosage: 200 MG, QD
     Route: 042
     Dates: start: 20150623, end: 20150623
  5. BRIDION INTRAVENOUS 200MG [Suspect]
     Active Substance: SUGAMMADEX
     Indication: NEUROMUSCULAR BLOCKADE REVERSAL
     Dosage: 200 MG, QD
     Route: 042
     Dates: start: 20150619, end: 20150619
  6. ULTIVA [Concomitant]
     Active Substance: REMIFENTANIL HYDROCHLORIDE
     Dosage: DOSAGE: 1MG/H, 0.8MG/H
     Route: 042
     Dates: start: 20150619, end: 20150619
  7. ESLAX [Suspect]
     Active Substance: ROCURONIUM BROMIDE
     Indication: GENERAL ANAESTHESIA
     Dosage: 115MG, QD, GENERAL ANESTHESIA MAINTENANCE 25MG/H,DIVIDED DOSE FREQUENCY UNKNOWN
     Route: 042
     Dates: start: 20150619, end: 20150619
  8. ESLAX [Suspect]
     Active Substance: ROCURONIUM BROMIDE
     Dosage: DOSAGE: 20 MG/HOUR, DURING BRAIN HYPOTHERMIA
     Route: 042
     Dates: start: 20150619, end: 20150621
  9. ESLAX [Suspect]
     Active Substance: ROCURONIUM BROMIDE
     Dosage: 50 MG, QD
     Route: 042
     Dates: start: 20150622, end: 20150622
  10. BRIDION INTRAVENOUS 200MG [Suspect]
     Active Substance: SUGAMMADEX
     Dosage: 200 MG, QD
     Route: 042
     Dates: start: 20150622, end: 20150622

REACTIONS (1)
  - Hypotonia [Recovered/Resolved]

NARRATIVE: CASE EVENT DATE: 20150619
